FAERS Safety Report 6549164-4 (Version None)
Quarter: 2010Q1

REPORT INFORMATION
  Report Type: 
  Country: None (occurrence: None)
  Receive Date: 20100125
  Receipt Date: 20091223
  Transmission Date: 20100710
  Serious: No
  Sender: FDA-Public Use
  Company Number: US-BAYER-201010357NA

PATIENT
  Age: 81 Year
  Sex: Female
  Weight: 127 kg

DRUGS (11)
  1. ULTRAVIST 370 [Suspect]
     Indication: COMPUTERISED TOMOGRAM ABDOMEN
     Dosage: TOTAL DAILY DOSE: 120 ML  UNIT DOSE: 500 ML
     Route: 042
     Dates: start: 20091223, end: 20091223
  2. ZOCOR [Concomitant]
  3. DIGOXIN [Concomitant]
  4. LASIX [Concomitant]
  5. PRILOSEC [Concomitant]
  6. METOLAZONE [Concomitant]
  7. GLIPIZIDE [Concomitant]
  8. THERA-M [Concomitant]
  9. VITAMIN B-12 [Concomitant]
  10. KLOR-CON [Concomitant]
  11. COUMADIN [Concomitant]

REACTIONS (2)
  - PRURITUS [None]
  - URTICARIA [None]
